FAERS Safety Report 17564507 (Version 1)
Quarter: 2020Q1

REPORT INFORMATION
  Report Type: Report from Study
  Country: KR (occurrence: KR)
  Receive Date: 20200320
  Receipt Date: 20200320
  Transmission Date: 20200409
  Serious: Yes (Hospitalization)
  Sender: FDA-Public Use
  Company Number: KR-GLAXOSMITHKLINE-KR2020GSK045715

PATIENT
  Age: 57 Year
  Sex: Female
  Weight: 62 kg

DRUGS (14)
  1. DEXILANT [Concomitant]
     Active Substance: DEXLANSOPRAZOLE
     Indication: PROPHYLAXIS
     Dosage: 30 MG (1CAP), TID
     Route: 048
     Dates: start: 20190604
  2. STILNOX [Concomitant]
     Active Substance: ZOLPIDEM TARTRATE
     Indication: INSOMNIA
     Dosage: 1 TAB, QD
     Route: 048
     Dates: start: 20170912
  3. FEROBA-YOU SR [Concomitant]
     Indication: PROPHYLAXIS
     Dosage: 1 DF, QD
     Route: 048
     Dates: start: 20190116
  4. SENSIVAL [Concomitant]
     Indication: STOMATITIS
     Dosage: 10 MG(1 TAB), BID
     Dates: start: 20151218
  5. FLUTICASONE FUROATE [Suspect]
     Active Substance: FLUTICASONE FUROATE
     Indication: ASTHMA
     Dosage: 100 ?G, QD
     Route: 055
     Dates: start: 20190923
  6. ENTELON [Concomitant]
     Indication: PROPHYLAXIS
     Dosage: 150 MG(1 TAB), QD
     Route: 048
     Dates: start: 20171206
  7. OPALMON [Concomitant]
     Active Substance: LIMAPROST
     Indication: FIBROMYALGIA
     Dosage: 1 DF, BID
     Route: 048
     Dates: start: 20190717
  8. SALAGEN [Concomitant]
     Active Substance: PILOCARPINE HYDROCHLORIDE
     Indication: SJOGREN^S SYNDROME
     Dosage: 0.5 TAB, BID
     Route: 048
     Dates: start: 20150403
  9. OMP [Concomitant]
     Active Substance: OMEPRAZOLE
     Indication: DYSPEPSIA
     Dosage: 1 DF, QD
     Route: 048
     Dates: start: 20190726
  10. ZANAPAM [Concomitant]
     Indication: TENSION HEADACHE
     Dosage: 0.25 MG(1TAB), BID
     Route: 048
     Dates: start: 20140828
  11. BEECOM [Concomitant]
     Dosage: 1 TAB, QD
     Route: 048
     Dates: start: 20190116
  12. VIVIANT [Concomitant]
     Active Substance: BAZEDOXIFENE
     Indication: OSTEOPOROSIS
     Dosage: 1 DF, BID
     Route: 048
     Dates: start: 20190717
  13. TOPAMAX [Concomitant]
     Active Substance: TOPIRAMATE
     Indication: TENSION HEADACHE
     Dosage: 25 MG(1 CAP), BID
     Route: 048
     Dates: start: 20140828
  14. SOLONDO [Concomitant]
     Active Substance: PREDNISOLONE
     Indication: PROPHYLAXIS
     Dosage: 1 DF, QD
     Route: 048
     Dates: start: 20190813

REACTIONS (1)
  - Myalgia [Recovered/Resolved]

NARRATIVE: CASE EVENT DATE: 20200204
